FAERS Safety Report 10846367 (Version 2)
Quarter: 2015Q1

REPORT INFORMATION
  Report Type: Spontaneous
  Country: SA (occurrence: SA)
  Receive Date: 20150220
  Receipt Date: 20150225
  Transmission Date: 20150721
  Serious: Yes (Hospitalization)
  Sender: FDA-Public Use
  Company Number: SA-IMPAX LABORATORIES, INC-2015-IPXL-00167

PATIENT
  Age: 2 Year
  Sex: Male

DRUGS (1)
  1. CLONIDINE HYDROCHLORIDE. [Suspect]
     Active Substance: CLONIDINE HYDROCHLORIDE
     Indication: PRODUCT USED FOR UNKNOWN INDICATION
     Dosage: UNK
     Route: 048

REACTIONS (13)
  - Somnolence [Unknown]
  - Malaise [Unknown]
  - Lethargy [Unknown]
  - Depressed level of consciousness [Unknown]
  - Atrioventricular block first degree [Unknown]
  - Pallor [Unknown]
  - Toxicity to various agents [Unknown]
  - Hypotonia [Unknown]
  - Miosis [Unknown]
  - Respiratory rate decreased [Unknown]
  - Accidental exposure to product by child [Unknown]
  - Peripheral coldness [Unknown]
  - Hypotension [Unknown]
